FAERS Safety Report 23521911 (Version 1)
Quarter: 2024Q1

REPORT INFORMATION
  Report Type: Spontaneous
  Country: IT (occurrence: IT)
  Receive Date: 20240214
  Receipt Date: 20240214
  Transmission Date: 20240409
  Serious: Yes (Other)
  Sender: FDA-Public Use
  Company Number: IT-SUN PHARMACEUTICAL INDUSTRIES LTD-2024R1-431053

PATIENT
  Age: 3 Year
  Sex: Female

DRUGS (1)
  1. TICLOPIDINE [Suspect]
     Active Substance: TICLOPIDINE
     Indication: Antiplatelet therapy
     Dosage: 250 MILLIGRAM
     Route: 065

REACTIONS (2)
  - Hypotension [Unknown]
  - Pyrexia [Unknown]
